FAERS Safety Report 12118836 (Version 2)
Quarter: 2016Q2

REPORT INFORMATION
  Report Type: Report from Study
  Country: US (occurrence: US)
  Receive Date: 20160226
  Receipt Date: 20160622
  Transmission Date: 20160815
  Serious: Yes (Death, Hospitalization, Other)
  Sender: FDA-Public Use
  Company Number: US-ASTRAZENECA-2015SE86341

PATIENT
  Age: 27010 Day
  Sex: Female
  Weight: 62.8 kg

DRUGS (14)
  1. ZOFRAN ODT [Concomitant]
     Active Substance: ONDANSETRON HYDROCHLORIDE
     Indication: NAUSEA
     Route: 048
  2. SYNTHROID [Concomitant]
     Active Substance: LEVOTHYROXINE SODIUM
     Route: 048
  3. NORVASC [Concomitant]
     Active Substance: AMLODIPINE BESYLATE
     Route: 048
  4. LASIX [Concomitant]
     Active Substance: FUROSEMIDE
     Dosage: 20.0MG UNKNOWN
     Route: 048
  5. MAG-OX [Concomitant]
     Active Substance: MAGNESIUM OXIDE
     Route: 048
  6. LYNPARZA [Suspect]
     Active Substance: OLAPARIB
     Indication: OVARIAN CANCER
     Route: 048
     Dates: start: 201508
  7. LISINOPRIL. [Suspect]
     Active Substance: LISINOPRIL
     Route: 048
  8. FLONASE [Concomitant]
     Active Substance: FLUTICASONE PROPIONATE
     Dosage: 50.0UG UNKNOWN
     Route: 045
  9. ATIVAN [Concomitant]
     Active Substance: LORAZEPAM
     Indication: ANXIETY
     Route: 048
  10. MULTIVITAMIN [Concomitant]
     Active Substance: VITAMINS
     Route: 048
  11. EDARBYCLOR [Concomitant]
     Active Substance: AZILSARTAN KAMEDOXOMIL\CHLORTHALIDONE
     Dosage: 40-12.5 MG, UNKNOWN
     Route: 048
  12. IRON [Concomitant]
     Active Substance: IRON
  13. ZYRTEC [Concomitant]
     Active Substance: CETIRIZINE HYDROCHLORIDE
     Dosage: 1.0DF UNKNOWN
     Route: 048
  14. ZOFRAN ODT [Concomitant]
     Active Substance: ONDANSETRON HYDROCHLORIDE
     Indication: VOMITING
     Route: 048

REACTIONS (19)
  - Diarrhoea [Unknown]
  - Hyponatraemia [Unknown]
  - Constipation [Unknown]
  - Malignant neoplasm progression [Not Recovered/Not Resolved]
  - Dehydration [Unknown]
  - Death [Fatal]
  - Skin lesion [Unknown]
  - Ovarian cancer [Unknown]
  - Vomiting [Unknown]
  - Anxiety disorder [Unknown]
  - Gastrooesophageal reflux disease [Unknown]
  - Hypertension [Unknown]
  - Drug hypersensitivity [Unknown]
  - Swelling [Unknown]
  - Hypernatraemia [Unknown]
  - Nausea [Unknown]
  - Hypothyroidism [Unknown]
  - Peripheral swelling [Unknown]
  - Fatigue [Unknown]

NARRATIVE: CASE EVENT DATE: 20130722
